FAERS Safety Report 17666572 (Version 1)
Quarter: 2020Q2

REPORT INFORMATION
  Report Type: Spontaneous
  Country: US (occurrence: US)
  Receive Date: 20200414
  Receipt Date: 20200414
  Transmission Date: 20200713
  Serious: No
  Sender: FDA-Public Use
  Company Number: US-CORCEPT THERAPEUTICS INC.-US-2019CRT001018

PATIENT
  Sex: Male

DRUGS (2)
  1. KORLYM [Suspect]
     Active Substance: MIFEPRISTONE
     Indication: HYPERGLYCAEMIA
     Dosage: 300 MG, QD
     Route: 048
     Dates: start: 201808
  2. KORLYM [Suspect]
     Active Substance: MIFEPRISTONE
     Indication: PITUITARY-DEPENDENT CUSHING^S SYNDROME
     Dosage: 300 MG, QOD
     Route: 048

REACTIONS (5)
  - Hot flush [Unknown]
  - Blood testosterone decreased [Not Recovered/Not Resolved]
  - Blood luteinising hormone decreased [Unknown]
  - Blood follicle stimulating hormone decreased [Unknown]
  - Incorrect dose administered [Not Recovered/Not Resolved]
